FAERS Safety Report 12544999 (Version 3)
Quarter: 2017Q1

REPORT INFORMATION
  Report Type: Spontaneous
  Country: US (occurrence: US)
  Receive Date: 20160711
  Receipt Date: 20170323
  Transmission Date: 20170428
  Serious: Yes (Other)
  Sender: FDA-Public Use
  Company Number: US-BAYER-2016-133999

PATIENT
  Age: 32 Year
  Sex: Female

DRUGS (2)
  1. MIRENA [Suspect]
     Active Substance: LEVONORGESTREL
     Indication: CONTRACEPTION
  2. MIRENA [Suspect]
     Active Substance: LEVONORGESTREL
     Indication: MENORRHAGIA
     Dosage: 20 MCG/24HR, CONT
     Route: 015
     Dates: start: 20150302, end: 20160706

REACTIONS (5)
  - Asthenia [None]
  - Genital haemorrhage [Recovered/Resolved]
  - Menometrorrhagia [None]
  - Depressed mood [None]
  - Drug ineffective [None]

NARRATIVE: CASE EVENT DATE: 201503
